FAERS Safety Report 8354216 (Version 11)
Quarter: 2016Q4

REPORT INFORMATION
  Report Type: Report from Study
  Country: CA (occurrence: CA)
  Receive Date: 20120125
  Receipt Date: 20161129
  Transmission Date: 20170207
  Serious: Yes (Hospitalization, Other)
  Sender: FDA-Public Use
  Company Number: PHHY2011CA95178

PATIENT
  Age: 73 Year
  Sex: Female

DRUGS (7)
  1. EXJADE [Suspect]
     Active Substance: DEFERASIROX
     Dosage: 1000 MG, QD
     Route: 048
     Dates: end: 20161024
  2. FOSAVANCE [Concomitant]
     Active Substance: ALENDRONATE SODIUM\CHOLECALCIFEROL
     Indication: PRODUCT USED FOR UNKNOWN INDICATION
     Dosage: UNK
     Route: 065
  3. ENSURE [Concomitant]
     Active Substance: AMINO ACIDS\DEXTROSE\ELECTROLYTES NOS\SOYBEAN OIL\VITAMINS
     Indication: PRODUCT USED FOR UNKNOWN INDICATION
     Dosage: UNK
     Route: 065
  4. BOOST [Concomitant]
     Active Substance: DIETARY SUPPLEMENT
     Indication: PRODUCT USED FOR UNKNOWN INDICATION
     Dosage: UNK
     Route: 065
  5. EXJADE [Suspect]
     Active Substance: DEFERASIROX
     Indication: MYELODYSPLASTIC SYNDROME
     Dosage: 500 MG, QD
     Route: 048
     Dates: start: 20110701
  6. EXJADE [Suspect]
     Active Substance: DEFERASIROX
     Dosage: 1000 MG, QD
     Route: 048
     Dates: start: 201107
  7. MULTIVITAMINS [Concomitant]
     Active Substance: VITAMINS
     Indication: PRODUCT USED FOR UNKNOWN INDICATION
     Dosage: UNK
     Route: 065

REACTIONS (19)
  - Blood pressure decreased [Unknown]
  - Blood calcium increased [Unknown]
  - Peripheral swelling [Unknown]
  - Thirst decreased [Unknown]
  - Micturition frequency decreased [Unknown]
  - Dyspnoea [Unknown]
  - Urine abnormality [Unknown]
  - Renal disorder [Unknown]
  - Serum ferritin increased [Unknown]
  - Protein urine present [Unknown]
  - Malaise [Unknown]
  - Influenza [Unknown]
  - Pericarditis [Unknown]
  - Urine output decreased [Unknown]
  - Pulmonary oedema [Unknown]
  - Dyspnoea [Recovered/Resolved]
  - Haemoglobin decreased [Unknown]
  - Back pain [Unknown]
  - Blood iron increased [Unknown]

NARRATIVE: CASE EVENT DATE: 201110
